FAERS Safety Report 12901629 (Version 22)
Quarter: 2019Q3

REPORT INFORMATION
  Report Type: Spontaneous
  Country: CA (occurrence: CA)
  Receive Date: 20161102
  Receipt Date: 20190724
  Transmission Date: 20191004
  Serious: Yes (Hospitalization, Other)
  Sender: FDA-Public Use
  Company Number: CA-ROCHE-1849502

PATIENT
  Age: 63 Year
  Sex: Female

DRUGS (21)
  1. XOLAIR [Suspect]
     Active Substance: OMALIZUMAB
     Route: 058
     Dates: start: 20171221
  2. XOLAIR [Suspect]
     Active Substance: OMALIZUMAB
     Route: 058
     Dates: start: 20180118
  3. XOLAIR [Suspect]
     Active Substance: OMALIZUMAB
     Route: 058
     Dates: start: 20190117
  4. XOLAIR [Suspect]
     Active Substance: OMALIZUMAB
     Indication: ASTHMA
     Route: 058
     Dates: start: 20051215
  5. XOLAIR [Suspect]
     Active Substance: OMALIZUMAB
     Route: 058
     Dates: start: 20180914
  6. PREDNISONE. [Suspect]
     Active Substance: PREDNISONE
     Indication: TEMPORAL ARTERITIS
     Route: 065
  7. CODEINE [Suspect]
     Active Substance: CODEINE
     Indication: COUGH
     Route: 065
  8. XOLAIR [Suspect]
     Active Substance: OMALIZUMAB
     Route: 058
     Dates: start: 20170329
  9. PREDNISONE. [Suspect]
     Active Substance: PREDNISONE
     Indication: BRONCHOSPASM
     Route: 065
  10. INSULIN [Concomitant]
     Active Substance: INSULIN NOS
     Indication: PRODUCT USED FOR UNKNOWN INDICATION
     Route: 065
  11. SPIRIVA [Concomitant]
     Active Substance: TIOTROPIUM BROMIDE MONOHYDRATE
     Indication: PRODUCT USED FOR UNKNOWN INDICATION
     Route: 048
     Dates: start: 200312
  12. XOLAIR [Suspect]
     Active Substance: OMALIZUMAB
     Route: 058
     Dates: start: 20170719
  13. XOLAIR [Suspect]
     Active Substance: OMALIZUMAB
     Route: 058
     Dates: start: 20180705
  14. XOLAIR [Suspect]
     Active Substance: OMALIZUMAB
     Route: 058
     Dates: start: 20180830
  15. PREDNISONE. [Suspect]
     Active Substance: PREDNISONE
     Route: 065
  16. PREDNISONE. [Suspect]
     Active Substance: PREDNISONE
     Route: 065
  17. DILAUDID [Suspect]
     Active Substance: HYDROMORPHONE HYDROCHLORIDE
     Indication: PRODUCT USED FOR UNKNOWN INDICATION
     Route: 065
  18. SYMBICORT [Concomitant]
     Active Substance: BUDESONIDE\FORMOTEROL FUMARATE DIHYDRATE
     Indication: PRODUCT USED FOR UNKNOWN INDICATION
     Route: 055
     Dates: start: 200312
  19. XOLAIR [Suspect]
     Active Substance: OMALIZUMAB
     Route: 058
     Dates: start: 20181108
  20. XOLAIR [Suspect]
     Active Substance: OMALIZUMAB
     Route: 058
     Dates: start: 20181220
  21. VENTOLIN [Concomitant]
     Active Substance: ALBUTEROL SULFATE
     Indication: PRODUCT USED FOR UNKNOWN INDICATION
     Route: 055
     Dates: start: 2003

REACTIONS (26)
  - Myocardial necrosis marker increased [Recovering/Resolving]
  - Bronchitis [Unknown]
  - Angina pectoris [Unknown]
  - Groin pain [Unknown]
  - Urinary tract infection [Unknown]
  - Blood cholesterol abnormal [Unknown]
  - Dysstasia [Unknown]
  - Cough [Recovered/Resolved]
  - Drug hypersensitivity [Unknown]
  - Palpitations [Recovering/Resolving]
  - Clostridium difficile infection [Unknown]
  - Diverticulitis [Unknown]
  - Malaise [Unknown]
  - Middle insomnia [Unknown]
  - Weight decreased [Unknown]
  - Cushing^s syndrome [Unknown]
  - Dry throat [Recovering/Resolving]
  - Blood pressure abnormal [Unknown]
  - Bronchospasm [Unknown]
  - Laryngeal pain [Unknown]
  - Nosocomial infection [Unknown]
  - Arthralgia [Unknown]
  - Asthma [Unknown]
  - Temporal arteritis [Unknown]
  - Speech disorder [Unknown]
  - Pain [Unknown]

NARRATIVE: CASE EVENT DATE: 20160913
